FAERS Safety Report 7070845-0 (Version None)
Quarter: 2010Q4

REPORT INFORMATION
  Report Type: 
  Country: None (occurrence: None)
  Receive Date: 20101029
  Receipt Date: 20101020
  Transmission Date: 20110411
  Serious: Yes (Other)
  Sender: FDA-Public Use
  Company Number: US-ASTRAZENECA-2010SE49721

PATIENT
  Age: 66 Year
  Sex: Male
  Weight: 98.9 kg

DRUGS (9)
  1. CRESTOR [Suspect]
     Route: 048
  2. CRESTOR [Suspect]
     Route: 048
     Dates: start: 20090701
  3. NIASPAN [Suspect]
     Indication: CORONARY ARTERY DISEASE
     Route: 065
     Dates: start: 20090101
  4. NIASPAN [Suspect]
     Route: 065
     Dates: start: 20090701
  5. ATENOLOL [Concomitant]
     Dates: start: 20100601
  6. ACETYLSALICYLIC ACID SRT [Concomitant]
  7. DIPHENHYDRAMINE HYDROCHLORIDE [Concomitant]
  8. GLIPIZIDE [Concomitant]
  9. METFORMIN [Concomitant]

REACTIONS (3)
  - ARTHRALGIA [None]
  - BLOOD GLUCOSE INCREASED [None]
  - VASCULAR GRAFT OCCLUSION [None]
